FAERS Safety Report 6073979-2 (Version None)
Quarter: 2009Q1

REPORT INFORMATION
  Report Type: 
  Country: None (occurrence: None)
  Receive Date: 20090209
  Receipt Date: 20090209
  Transmission Date: 20090719
  Serious: Yes (Hospitalization, Other)
  Sender: FDA-Public Use
  Company Number: None

PATIENT
  Age: 46 Year
  Sex: Female
  Weight: 68 kg

DRUGS (1)
  1. EPINEPHRINE [Suspect]
     Indication: RASH
     Dosage: 1MG IV
     Route: 042
     Dates: start: 20060418, end: 20060418

REACTIONS (4)
  - CARDIAC DISORDER [None]
  - GENERAL PHYSICAL CONDITION ABNORMAL [None]
  - LOSS OF CONSCIOUSNESS [None]
  - MYOCARDIAL INFARCTION [None]
